FAERS Safety Report 14857854 (Version 2)
Quarter: 2018Q4

REPORT INFORMATION
  Report Type: Spontaneous
  Country: FR (occurrence: FR)
  Receive Date: 20180508
  Receipt Date: 20181025
  Transmission Date: 20190204
  Serious: Yes (Other)
  Sender: FDA-Public Use
  Company Number: FR-MERCK KGAA-2047342

PATIENT
  Age: 72 Year
  Sex: Female
  Weight: 62.4 kg

DRUGS (1)
  1. EUTHYROX [Suspect]
     Active Substance: LEVOTHYROXINE SODIUM
     Indication: POST PROCEDURAL HYPOTHYROIDISM
     Route: 048
     Dates: start: 20170407

REACTIONS (29)
  - Pruritus [None]
  - Gait disturbance [None]
  - Poor quality sleep [None]
  - Fear of death [None]
  - Nausea [Not Recovered/Not Resolved]
  - Negative thoughts [None]
  - Mobility decreased [None]
  - Abdominal pain [None]
  - Vomiting [Not Recovered/Not Resolved]
  - Fatigue [Not Recovered/Not Resolved]
  - Feeling abnormal [None]
  - Back pain [Not Recovered/Not Resolved]
  - Anxiety [None]
  - Headache [None]
  - Depression [None]
  - Insomnia [Not Recovered/Not Resolved]
  - Dizziness [None]
  - Depressed mood [None]
  - Muscle spasms [Not Recovered/Not Resolved]
  - Pain in extremity [Not Recovered/Not Resolved]
  - Impaired work ability [None]
  - Weight decreased [Not Recovered/Not Resolved]
  - Diarrhoea [None]
  - Alopecia [Not Recovered/Not Resolved]
  - Loss of personal independence in daily activities [None]
  - Feeling guilty [None]
  - Thyroxine free increased [None]
  - Bedridden [None]
  - Pyrexia [None]

NARRATIVE: CASE EVENT DATE: 201704
